FAERS Safety Report 4518643-3 (Version None)
Quarter: 2004Q4

REPORT INFORMATION
  Report Type: 
  Country: None (occurrence: None)
  Receive Date: 20041101
  Receipt Date: 20031113
  Transmission Date: 20050328
  Serious: Yes (Hospitalization, Other)
  Sender: FDA-Public Use
  Company Number: 200319848US

PATIENT
  Sex: Male

DRUGS (2)
  1. ANZEMET [Suspect]
     Indication: PREMEDICATION
     Dosage: 100 MG IV
     Route: 042
     Dates: start: 20031111, end: 20031111
  2. CHEMOTHERAPY NOS [Concomitant]

REACTIONS (1)
  - ANAPHYLACTIC REACTION [None]
